FAERS Safety Report 17854566 (Version 1)
Quarter: 2020Q2

REPORT INFORMATION
  Report Type: Spontaneous
  Country: US (occurrence: US)
  Receive Date: 20200602
  Receipt Date: 20200602
  Transmission Date: 20200714
  Serious: Yes (Other)
  Sender: FDA-Public Use
  Company Number: None

PATIENT
  Age: 76 Year
  Sex: Male
  Weight: 80.8 kg

DRUGS (22)
  1. FAMOTIDINE. [Concomitant]
     Active Substance: FAMOTIDINE
     Dates: start: 20200526
  2. LINEZOLID. [Concomitant]
     Active Substance: LINEZOLID
     Dates: start: 20200530
  3. PROPOFOL. [Concomitant]
     Active Substance: PROPOFOL
     Dates: start: 20200526
  4. NOREPINEPHRINE. [Concomitant]
     Active Substance: NOREPINEPHRINE
     Dates: start: 20200526
  5. INSULIN LISPRO [Concomitant]
     Active Substance: INSULIN LISPRO
     Dates: start: 20200526
  6. PREGABALIN. [Concomitant]
     Active Substance: PREGABALIN
     Dates: start: 20150730, end: 20200525
  7. LIRAGLUTIDE [Concomitant]
     Active Substance: LIRAGLUTIDE
     Dates: start: 20190723, end: 20200525
  8. METFORMIN [Concomitant]
     Active Substance: METFORMIN HYDROCHLORIDE
     Dates: start: 20101013, end: 20200525
  9. METOPROLOL SUCCINATE. [Concomitant]
     Active Substance: METOPROLOL SUCCINATE
     Dates: start: 20101013, end: 20200525
  10. ATORVASTATIN [Concomitant]
     Active Substance: ATORVASTATIN
     Dates: start: 20120723
  11. INSULIN GLARGINE [Concomitant]
     Active Substance: INSULIN GLARGINE
     Dates: start: 20200526
  12. REMDESIVIR. [Suspect]
     Active Substance: REMDESIVIR
     Indication: COVID-19
     Route: 042
     Dates: start: 20200527, end: 20200530
  13. METOLAZONE. [Concomitant]
     Active Substance: METOLAZONE
     Dates: start: 20200602
  14. ISOPHANE INSULIN [Concomitant]
     Active Substance: INSULIN NOS
     Dates: start: 20200602
  15. LOSARTAN. [Concomitant]
     Active Substance: LOSARTAN
     Dates: start: 20101013, end: 20200525
  16. BUMETANIDE. [Concomitant]
     Active Substance: BUMETANIDE
     Dates: start: 20160325
  17. REMDESIVIR. [Suspect]
     Active Substance: REMDESIVIR
     Indication: COVID-19
     Route: 042
     Dates: start: 20200526, end: 20200526
  18. MELATONIN [Concomitant]
     Active Substance: MELATONIN
     Dates: start: 20200526
  19. INSULIN REGULAR [Concomitant]
     Active Substance: INSULIN NOS
     Dates: start: 20200526
  20. CEFEPIME [Concomitant]
     Active Substance: CEFEPIME HYDROCHLORIDE
     Dates: start: 20200601
  21. HYDROMORPHONE [Concomitant]
     Active Substance: HYDROMORPHONE
     Dates: start: 20200526
  22. LEVOTHYROXINE. [Concomitant]
     Active Substance: LEVOTHYROXINE
     Dates: start: 20161005

REACTIONS (6)
  - Condition aggravated [None]
  - Hepatic enzyme increased [None]
  - Chronic kidney disease [None]
  - Cholelithiasis [None]
  - Cholecystitis [None]
  - Renal failure [None]

NARRATIVE: CASE EVENT DATE: 20200531
